FAERS Safety Report 6307606-3 (Version None)
Quarter: 2009Q3

REPORT INFORMATION
  Report Type: 
  Country: None (occurrence: None)
  Receive Date: 20090813
  Receipt Date: 20090731
  Transmission Date: 20100115
  Serious: Yes (Other)
  Sender: FDA-Public Use
  Company Number: PHEH2009US08667

PATIENT
  Sex: Male

DRUGS (5)
  1. EXJADE [Suspect]
     Indication: MYELODYSPLASTIC SYNDROME
     Dosage: 1500 MG/DAY
     Route: 048
     Dates: start: 20090717
  2. OXYCODONE HCL AND ACETAMINOPHEN [Concomitant]
  3. TEMAZEPAM [Concomitant]
  4. PROCHLORPERAZINE [Concomitant]
  5. CITRUCEL [Concomitant]

REACTIONS (3)
  - DRY MOUTH [None]
  - RASH ERYTHEMATOUS [None]
  - SKIN EXFOLIATION [None]
